FAERS Safety Report 17044589 (Version 1)
Quarter: 2019Q4

REPORT INFORMATION
  Report Type: Spontaneous
  Country: DE (occurrence: DE)
  Receive Date: 20191118
  Receipt Date: 20191118
  Transmission Date: 20200122
  Serious: Yes (Other)
  Sender: FDA-Public Use
  Company Number: DE-BAUSCH-BL-2019-060912

PATIENT
  Age: 39 Year
  Sex: Female
  Weight: 86 kg

DRUGS (7)
  1. MINPROSTIN [Concomitant]
     Active Substance: DINOPROSTONE
     Indication: LABOUR INDUCTION
     Route: 067
  2. LEVEMIR [Concomitant]
     Active Substance: INSULIN DETEMIR
     Indication: GESTATIONAL DIABETES
     Route: 058
     Dates: start: 20190211, end: 20190604
  3. L-THYROXIN [Concomitant]
     Active Substance: LEVOTHYROXINE SODIUM
     Indication: HYPOTHYROIDISM
     Route: 048
     Dates: start: 20180916, end: 20190604
  4. NOVORAPID [Concomitant]
     Active Substance: INSULIN ASPART
     Indication: GESTATIONAL DIABETES
     Dosage: (7-4 I.E.)
     Route: 058
     Dates: start: 20190211, end: 20190604
  5. ACICLOVIR [Concomitant]
     Active Substance: ACYCLOVIR
     Indication: GENITAL HERPES
     Route: 048
     Dates: start: 20190529, end: 20190604
  6. FOLIO [Concomitant]
     Active Substance: FOLIC ACID
     Indication: PROPHYLAXIS OF NEURAL TUBE DEFECT
     Route: 048
  7. PREDNISOLON [Suspect]
     Active Substance: PREDNISOLONE
     Indication: URTICARIAL VASCULITIS
     Route: 048
     Dates: start: 20180916, end: 20190604

REACTIONS (3)
  - Exposure during pregnancy [Recovered/Resolved]
  - Gestational diabetes [Recovered/Resolved]
  - Amniotic fluid volume increased [Recovered/Resolved]

NARRATIVE: CASE EVENT DATE: 20180916
